FAERS Safety Report 16276562 (Version 1)
Quarter: 2019Q2

REPORT INFORMATION
  Report Type: Spontaneous
  Country: US (occurrence: US)
  Receive Date: 20190504
  Receipt Date: 20190504
  Transmission Date: 20190711
  Serious: Yes (Disabling)
  Sender: FDA-Public Use
  Company Number: None

PATIENT
  Age: 56 Year
  Sex: Female
  Weight: 73.8 kg

DRUGS (7)
  1. MULTIVITAMINS [Concomitant]
     Active Substance: VITAMINS
  2. ESTRADIOL. [Concomitant]
     Active Substance: ESTRADIOL
  3. PROBIOTICS [Concomitant]
     Active Substance: PROBIOTICS NOS
  4. CIPROFLOXACIN. [Suspect]
     Active Substance: CIPROFLOXACIN
     Indication: PROTEUS TEST POSITIVE
     Route: 048
     Dates: start: 20190327, end: 20190403
  5. XYZAL [Concomitant]
     Active Substance: LEVOCETIRIZINE DIHYDROCHLORIDE
  6. MELOXICAM. [Concomitant]
     Active Substance: MELOXICAM
  7. TRAZODONE [Concomitant]
     Active Substance: TRAZODONE HYDROCHLORIDE

REACTIONS (2)
  - Musculoskeletal stiffness [None]
  - Myalgia [None]

NARRATIVE: CASE EVENT DATE: 20190421
